FAERS Safety Report 17374412 (Version 3)
Quarter: 2020Q1

REPORT INFORMATION
  Report Type: Report from Study
  Country: None (occurrence: US)
  Receive Date: 20200206
  Receipt Date: 20200306
  Transmission Date: 20200409
  Serious: Yes (Hospitalization, Other)
  Sender: FDA-Public Use
  Company Number: US-ABBVIE-19K-163-2967467-00

PATIENT
  Sex: Female

DRUGS (4)
  1. HUMIRA [Suspect]
     Active Substance: ADALIMUMAB
     Route: 058
     Dates: start: 201909
  2. HUMIRA [Suspect]
     Active Substance: ADALIMUMAB
     Route: 058
     Dates: start: 2018, end: 2018
  3. HUMIRA [Suspect]
     Active Substance: ADALIMUMAB
     Route: 058
     Dates: start: 20200127
  4. HUMIRA [Suspect]
     Active Substance: ADALIMUMAB
     Indication: RHEUMATOID ARTHRITIS
     Route: 058
     Dates: start: 2017, end: 2018

REACTIONS (11)
  - Device deployment issue [Recovering/Resolving]
  - Bone neoplasm [Unknown]
  - Arthralgia [Not Recovered/Not Resolved]
  - Device related infection [Recovering/Resolving]
  - Rheumatoid arthritis [Unknown]
  - Medical device site reaction [Recovering/Resolving]
  - Arthropathy [Recovering/Resolving]
  - Drug ineffective [Not Recovered/Not Resolved]
  - Ankle deformity [Recovering/Resolving]
  - Ankle fracture [Unknown]
  - Arthritis infective [Recovering/Resolving]

NARRATIVE: CASE EVENT DATE: 2018
